FAERS Safety Report 10552242 (Version 1)
Quarter: 2014Q4

REPORT INFORMATION
  Report Type: Spontaneous
  Country: US (occurrence: None)
  Receive Date: 20141023
  Receipt Date: 20141023
  Transmission Date: 20150529
  Serious: No
  Sender: FDA-Public Use
  Company Number: AP356-01212-SPO-US

PATIENT
  Age: 63 Year
  Sex: Female
  Weight: 114 kg

DRUGS (11)
  1. BELVIQ [Suspect]
     Active Substance: LORCASERIN HYDROCHLORIDE
     Indication: WEIGHT DECREASED
     Dosage: 20 MG, 2 IN 1 D, ORAL
     Route: 048
     Dates: start: 201406
  2. SIMVASTATIN (SIMVASTATIN) [Concomitant]
     Active Substance: SIMVASTATIN
  3. METOPROLOL (METOPROLOL) [Concomitant]
     Active Substance: METOPROLOL
  4. CYMBALTA [Concomitant]
     Active Substance: DULOXETINE HYDROCHLORIDE
  5. LEVOTHYROXINE (LEVOTHYROXINE) [Concomitant]
     Active Substance: LEVOTHYROXINE
  6. CALCIUM (CALCIUM) [Concomitant]
     Active Substance: CALCIUM
  7. VICODIN (VICODIN) [Concomitant]
     Active Substance: ACETAMINOPHEN\HYDROCODONE BITARTRATE
  8. ACIDOPHILUS (LACTOBACILLUS ACIDOPHILUS) [Concomitant]
  9. METFORMIN [Concomitant]
     Active Substance: METFORMIN HYDROCHLORIDE
  10. AMBIEN [Concomitant]
     Active Substance: ZOLPIDEM TARTRATE
  11. MELATONIN (MELATONIN) [Concomitant]
     Active Substance: MELATONIN

REACTIONS (3)
  - Drug effect decreased [None]
  - Sleep-related eating disorder [None]
  - Drug dose omission [None]

NARRATIVE: CASE EVENT DATE: 201406
